FAERS Safety Report 8270665-5 (Version None)
Quarter: 2012Q2

REPORT INFORMATION
  Report Type: 
  Country: None (occurrence: None)
  Receive Date: 20120406
  Receipt Date: 20120326
  Transmission Date: 20120825
  Serious: Yes (Hospitalization)
  Sender: FDA-Public Use
  Company Number: TCI2012A01574

PATIENT
  Sex: Female

DRUGS (3)
  1. FLUTITRAN (TRICHLORMETHIAZIDE) [Concomitant]
  2. CALSLOT (MANIDIPINE HYDROCHLORIDE) [Concomitant]
  3. ACTOS [Suspect]
     Indication: DIABETES MELLITUS
     Dosage: 15 MG (15 MG, 1 D), PER ORAL
     Route: 048
     Dates: start: 20080101, end: 20110701

REACTIONS (2)
  - PERICARDIAL EFFUSION [None]
  - DYSPNOEA [None]
